FAERS Safety Report 15464777 (Version 3)
Quarter: 2019Q1

REPORT INFORMATION
  Report Type: Spontaneous
  Country: US (occurrence: US)
  Receive Date: 20181004
  Receipt Date: 20190123
  Transmission Date: 20190417
  Serious: No
  Sender: FDA-Public Use
  Company Number: US-PFIZER INC-2018400678

PATIENT
  Age: 71 Year
  Sex: Female
  Weight: 71.2 kg

DRUGS (4)
  1. LYRICA [Suspect]
     Active Substance: PREGABALIN
     Indication: TRIGEMINAL NEURALGIA
     Dosage: 200 MG, 2X/DAY
  2. LYRICA [Suspect]
     Active Substance: PREGABALIN
     Dosage: 200 MG, 1X/DAY (AT BEDTIME)
     Route: 048
     Dates: start: 20190114
  3. LYRICA [Suspect]
     Active Substance: PREGABALIN
     Dosage: 300 MG, 1X/DAY (FOR TOTAL 300MG AT BEDTIME)
     Route: 048
     Dates: start: 20171211, end: 20180205
  4. LYRICA [Suspect]
     Active Substance: PREGABALIN
     Dosage: 200 MG, UNK
     Dates: end: 20180921

REACTIONS (2)
  - Drug effect incomplete [Recovering/Resolving]
  - Somnolence [Recovering/Resolving]
